FAERS Safety Report 24765671 (Version 2)
Quarter: 2025Q1

REPORT INFORMATION
  Report Type: Spontaneous
  Country: FR (occurrence: FR)
  Receive Date: 20241223
  Receipt Date: 20250106
  Transmission Date: 20250408
  Serious: Yes (Hospitalization)
  Sender: SANDOZ
  Company Number: None

PATIENT
  Age: 58 Year
  Sex: Female

DRUGS (7)
  1. TRIMEPRAZINE [Suspect]
     Active Substance: TRIMEPRAZINE
     Indication: Toxicity to various agents
     Route: 048
     Dates: start: 20241031, end: 20241031
  2. CODEINE [Suspect]
     Active Substance: CODEINE
     Indication: Toxicity to various agents
     Route: 048
     Dates: start: 20241031, end: 20241031
  3. NALTREXONE [Suspect]
     Active Substance: NALTREXONE
     Indication: Toxicity to various agents
     Route: 048
     Dates: start: 20241031, end: 20241031
  4. OXAZEPAM [Suspect]
     Active Substance: OXAZEPAM
     Indication: Toxicity to various agents
     Route: 048
     Dates: start: 20241031, end: 20241031
  5. ACETAMINOPHEN [Suspect]
     Active Substance: ACETAMINOPHEN
     Indication: Toxicity to various agents
     Route: 048
     Dates: start: 20241031, end: 20241031
  6. ACETAMINOPHEN\CODEINE PHOSPHATE [Suspect]
     Active Substance: ACETAMINOPHEN\CODEINE PHOSPHATE
     Indication: Toxicity to various agents
     Route: 048
     Dates: start: 20241031, end: 20241031
  7. QUETIAPINE [Suspect]
     Active Substance: QUETIAPINE
     Indication: Toxicity to various agents
     Route: 048
     Dates: start: 20241031, end: 20241031

REACTIONS (8)
  - Hepatic cytolysis [Recovered/Resolved]
  - Disturbance in attention [Recovered/Resolved]
  - Acetonaemia [Recovered/Resolved]
  - Acute kidney injury [Recovered/Resolved]
  - Toxicity to various agents [Recovered/Resolved]
  - Tremor [Recovered/Resolved]
  - Tachycardia [Recovered/Resolved]
  - Rhabdomyolysis [Recovered/Resolved]

NARRATIVE: CASE EVENT DATE: 20241031
